FAERS Safety Report 19393503 (Version 2)
Quarter: 2021Q2

REPORT INFORMATION
  Report Type: Spontaneous
  Country: US (occurrence: US)
  Receive Date: 20210609
  Receipt Date: 20210609
  Transmission Date: 20210717
  Serious: No
  Sender: FDA-Public Use
  Company Number: US-PFIZER INC-2021184473

PATIENT
  Age: 69 Year
  Sex: Male

DRUGS (2)
  1. CAVERJECT IMPULSE [Suspect]
     Active Substance: ALPROSTADIL
     Dosage: 20 UG, AS NEEDED (CAVERJECT 20 MCG INJECT INTO CORPOUS OF PENIS AS NEEDED)
     Route: 017
  2. CAVERJECT [Suspect]
     Active Substance: ALPROSTADIL

REACTIONS (2)
  - Product dispensing error [Unknown]
  - Visual impairment [Unknown]
